FAERS Safety Report 16844565 (Version 5)
Quarter: 2024Q1

REPORT INFORMATION
  Report Type: Spontaneous
  Country: US (occurrence: US)
  Receive Date: 20190924
  Receipt Date: 20240214
  Transmission Date: 20240410
  Serious: Yes (Other)
  Sender: FDA-Public Use
  Company Number: US-GILEAD-2019-0429379

PATIENT
  Age: 42 Year
  Sex: Female
  Weight: 90.703 kg

DRUGS (57)
  1. VIREAD [Suspect]
     Active Substance: TENOFOVIR DISOPROXIL FUMARATE
     Indication: HIV infection
     Dosage: UNK
     Route: 048
     Dates: start: 2005, end: 200706
  2. TRUVADA [Suspect]
     Active Substance: EMTRICITABINE\TENOFOVIR DISOPROXIL FUMARATE
     Indication: HIV infection
     Dosage: UNK
     Route: 048
     Dates: start: 200706, end: 200808
  3. ATRIPLA [Suspect]
     Active Substance: EFAVIRENZ\EMTRICITABINE\TENOFOVIR DISOPROXIL FUMARATE
     Indication: HIV infection
     Dosage: UNK
     Route: 048
     Dates: start: 20080801, end: 201203
  4. VITAMIN D3 [Concomitant]
     Active Substance: CHOLECALCIFEROL
  5. CALCIUM [Concomitant]
     Active Substance: CALCIUM
  6. CRIXIVAN [Concomitant]
     Active Substance: INDINAVIR SULFATE
  7. EDURANT [Concomitant]
     Active Substance: RILPIVIRINE HYDROCHLORIDE
  8. JULUCA [Concomitant]
     Active Substance: DOLUTEGRAVIR SODIUM\RILPIVIRINE HYDROCHLORIDE
  9. NORVIR [Concomitant]
     Active Substance: RITONAVIR
  10. REYATAZ [Concomitant]
     Active Substance: ATAZANAVIR SULFATE
  11. TIVICAY [Concomitant]
     Active Substance: DOLUTEGRAVIR SODIUM
  12. TRIUMEQ [Concomitant]
     Active Substance: ABACAVIR SULFATE\DOLUTEGRAVIR SODIUM\LAMIVUDINE
  13. ADDERALL [Concomitant]
     Active Substance: AMPHETAMINE ASPARTATE\AMPHETAMINE SULFATE\DEXTROAMPHETAMINE SACCHARATE\DEXTROAMPHETAMINE SULFATE
  14. ASPIRIN [Concomitant]
     Active Substance: ASPIRIN
  15. AVANDIA [Concomitant]
     Active Substance: ROSIGLITAZONE MALEATE
  16. AXIRON [Concomitant]
     Active Substance: TESTOSTERONE
  17. AZITHROMYCIN [Concomitant]
     Active Substance: AZITHROMYCIN
  18. BISACODYL [Concomitant]
     Active Substance: BISACODYL
  19. CHANTIX [Concomitant]
     Active Substance: VARENICLINE TARTRATE
  20. CLOBETASOL [Concomitant]
     Active Substance: CLOBETASOL
  21. CLONAZEPAM [Concomitant]
     Active Substance: CLONAZEPAM
  22. CYMBALTA [Concomitant]
     Active Substance: DULOXETINE HYDROCHLORIDE
  23. DEXTROAMPHETAMINE [Concomitant]
     Active Substance: DEXTROAMPHETAMINE
  24. DOCUSATE SODIUM [Concomitant]
     Active Substance: DOCUSATE SODIUM
  25. DULOXETINE [Concomitant]
     Active Substance: DULOXETINE
  26. ESTRADIOL [Concomitant]
     Active Substance: ESTRADIOL
  27. FENTANYL [Concomitant]
     Active Substance: FENTANYL\FENTANYL CITRATE
  28. FLUCONAZOLE [Concomitant]
     Active Substance: FLUCONAZOLE
  29. GABAPENTIN [Concomitant]
     Active Substance: GABAPENTIN
  30. LANTUS [Concomitant]
     Active Substance: INSULIN GLARGINE
  31. LEVOTHYROXINE [Concomitant]
     Active Substance: LEVOTHYROXINE\LEVOTHYROXINE SODIUM
  32. LEVOXYL [Concomitant]
     Active Substance: LEVOTHYROXINE SODIUM
  33. LIPITOR [Concomitant]
     Active Substance: ATORVASTATIN CALCIUM
  34. METANX [Concomitant]
     Active Substance: LEVOMEFOLATE CALCIUM\METHYLCOBALAMIN\PYRIDOXAL PHOSPHATE ANHYDROUS
  35. METHYLPHENIDATE [Concomitant]
     Active Substance: METHYLPHENIDATE
  36. MORPHINE [Concomitant]
     Active Substance: MORPHINE
  37. NOVOLOG [Concomitant]
     Active Substance: INSULIN ASPART
  38. OMEPRAZOLE [Concomitant]
     Active Substance: OMEPRAZOLE
  39. ONDANSETRON [Concomitant]
     Active Substance: ONDANSETRON
  40. OXYCODONE [Concomitant]
     Active Substance: OXYCODONE\OXYCODONE HYDROCHLORIDE
  41. POLYETHYLENE GLYCOL, UNSPECIFIED [Concomitant]
     Active Substance: POLYETHYLENE GLYCOL, UNSPECIFIED
  42. PRILOSEC [Concomitant]
     Active Substance: OMEPRAZOLE MAGNESIUM
  43. PROCHLORPERAZINE [Concomitant]
     Active Substance: PROCHLORPERAZINE
  44. OMEPRAZOLE [Concomitant]
     Active Substance: OMEPRAZOLE
  45. QUETIAPINE FUMARATE [Concomitant]
     Active Substance: QUETIAPINE FUMARATE
  46. SENNA S [Concomitant]
     Active Substance: DOCUSATE SODIUM\SENNA LEAF
  47. SENEXON-S [Concomitant]
     Active Substance: DOCUSATE SODIUM\SENNOSIDES A AND B
  48. SERTRALINE [Concomitant]
     Active Substance: SERTRALINE HYDROCHLORIDE
  49. SIMVASTATIN [Concomitant]
     Active Substance: SIMVASTATIN
  50. SULFAMETHOXAZOLE [Concomitant]
     Active Substance: SULFAMETHOXAZOLE
  51. TEMAZEPAM [Concomitant]
     Active Substance: TEMAZEPAM
  52. TOPIRAMATE [Concomitant]
     Active Substance: TOPIRAMATE
  53. ADENOSINE [Concomitant]
     Active Substance: ADENOSINE
  54. VALACYCLOVIR [Concomitant]
     Active Substance: VALACYCLOVIR HYDROCHLORIDE
  55. VALTREX [Concomitant]
     Active Substance: VALACYCLOVIR HYDROCHLORIDE
  56. WARFARIN [Concomitant]
     Active Substance: WARFARIN
  57. ZOLPIDEM [Concomitant]
     Active Substance: ZOLPIDEM TARTRATE

REACTIONS (12)
  - Shoulder fracture [Recovered/Resolved]
  - Osteoporosis [Not Recovered/Not Resolved]
  - Spinal compression fracture [Not Recovered/Not Resolved]
  - Osteopenia [Not Recovered/Not Resolved]
  - Loss of personal independence in daily activities [Unknown]
  - Decreased activity [Unknown]
  - Quality of life decreased [Unknown]
  - Pain [Not Recovered/Not Resolved]
  - Emotional distress [Not Recovered/Not Resolved]
  - Anxiety [Not Recovered/Not Resolved]
  - Anhedonia [Not Recovered/Not Resolved]
  - Economic problem [Not Recovered/Not Resolved]

NARRATIVE: CASE EVENT DATE: 20080118
